FAERS Safety Report 6661297-0 (Version None)
Quarter: 2010Q1

REPORT INFORMATION
  Report Type: 
  Country: None (occurrence: None)
  Receive Date: 20100329
  Receipt Date: 20100317
  Transmission Date: 20100710
  Serious: Yes (Other)
  Sender: FDA-Public Use
  Company Number: DSU-2010-01156

PATIENT
  Sex: Female

DRUGS (1)
  1. WELCHOL [Suspect]
     Indication: HYPERLIPIDAEMIA
     Dosage: 3.75 GM (3.75 GM, QD), PER ORAL
     Route: 048
     Dates: start: 20100101, end: 20100101

REACTIONS (1)
  - SUICIDAL IDEATION [None]
